FAERS Safety Report 18615451 (Version 2)
Quarter: 2020Q4

REPORT INFORMATION
  Report Type: Spontaneous
  Country: US (occurrence: US)
  Receive Date: 20201215
  Receipt Date: 20201219
  Transmission Date: 20210114
  Serious: Yes (Life-Threatening, Hospitalization, Other)
  Sender: FDA-Public Use
  Company Number: US-UNITED THERAPEUTICS-UNT-2020-019654

PATIENT
  Age: 64 Year
  Sex: Female
  Weight: 101.59 kg

DRUGS (2)
  1. REMODULIN [Suspect]
     Active Substance: TREPROSTINIL
     Indication: PULMONARY ARTERIAL HYPERTENSION
     Dosage: UNK, CONTINUING
     Route: 041
     Dates: start: 20191112
  2. REMODULIN [Suspect]
     Active Substance: TREPROSTINIL
     Dosage: 0.0365 ?G/KG, CONTINUING
     Route: 041
     Dates: end: 202012

REACTIONS (2)
  - General physical health deterioration [Unknown]
  - Cardiac failure [Unknown]

NARRATIVE: CASE EVENT DATE: 202012
